FAERS Safety Report 19407907 (Version 1)
Quarter: 2021Q2

REPORT INFORMATION
  Report Type: Spontaneous
  Country: CN (occurrence: CN)
  Receive Date: 20210611
  Receipt Date: 20210611
  Transmission Date: 20210717
  Serious: Yes (Hospitalization, Other)
  Sender: FDA-Public Use
  Company Number: CN-UCBSA-2021028501

PATIENT
  Age: 66 Year
  Sex: Male
  Weight: 71 kg

DRUGS (4)
  1. DESLORATADINE CITRATE DISODIUM [Concomitant]
     Active Substance: DESLORATADINE
  2. CELEBREX [Concomitant]
     Active Substance: CELECOXIB
     Indication: MUSCLE STRAIN
     Dosage: 200.000 MILLIGRAM, 2X/DAY (BID)
     Route: 048
     Dates: start: 20210320, end: 20210327
  3. DEXAMETHASONE. [Concomitant]
     Active Substance: DEXAMETHASONE
  4. LEVOCETIRIZINE [Suspect]
     Active Substance: LEVOCETIRIZINE
     Indication: DERMATITIS ALLERGIC
     Dosage: UNK
     Route: 048

REACTIONS (1)
  - Erythema multiforme [Recovering/Resolving]

NARRATIVE: CASE EVENT DATE: 20210327
